FAERS Safety Report 24167469 (Version 1)
Quarter: 2024Q3

REPORT INFORMATION
  Report Type: Spontaneous
  Country: US (occurrence: None)
  Receive Date: 20240801
  Receipt Date: 20240801
  Transmission Date: 20241016
  Serious: Yes (Hospitalization)
  Sender: Public
  Company Number: None

PATIENT
  Age: 66 Year

DRUGS (1)
  1. IDHIFA [Suspect]
     Active Substance: ENASIDENIB MESYLATE
     Indication: Acute myeloid leukaemia
     Dosage: FREQUENCY : DAILY;?
     Dates: start: 20240713

REACTIONS (6)
  - Feeling abnormal [None]
  - Dyspnoea [None]
  - Chronic obstructive pulmonary disease [None]
  - Fatigue [None]
  - Insomnia [None]
  - Nausea [None]

NARRATIVE: CASE EVENT DATE: 20240726
